FAERS Safety Report 15292263 (Version 1)
Quarter: 2018Q3

REPORT INFORMATION
  Report Type: Spontaneous
  Country: US (occurrence: US)
  Receive Date: 20180806
  Receipt Date: 20180806
  Transmission Date: 20181010
  Serious: Yes (Disabling)
  Sender: FDA-Public Use
  Company Number: None

PATIENT
  Age: 27 Year
  Weight: 104.33 kg

DRUGS (1)
  1. NEXPLANON [Suspect]
     Active Substance: ETONOGESTREL

REACTIONS (12)
  - Implant site induration [None]
  - Implant site warmth [None]
  - Implant site pain [None]
  - Treatment noncompliance [None]
  - Pregnancy [None]
  - Device extrusion [None]
  - Implant site discharge [None]
  - Maternal exposure before pregnancy [None]
  - Muscle spasms [None]
  - Implant site infection [None]
  - Implant site swelling [None]
  - Implant site bruising [None]

NARRATIVE: CASE EVENT DATE: 20140819
